FAERS Safety Report 23133659 (Version 1)
Quarter: 2023Q4

REPORT INFORMATION
  Report Type: Spontaneous
  Country: FR (occurrence: FR)
  Receive Date: 20231101
  Receipt Date: 20231101
  Transmission Date: 20240110
  Serious: Yes (Other)
  Sender: FDA-Public Use
  Company Number: None

PATIENT
  Age: 48 Year
  Sex: Male

DRUGS (2)
  1. LYRICA [Suspect]
     Active Substance: PREGABALIN
     Indication: Product used for unknown indication
     Dosage: 2 CAPS OF 300MG COMBINED WITH ALCOHOL TWICE/MONTH
     Route: 048
     Dates: start: 2023
  2. COCAINE [Suspect]
     Active Substance: COCAINE
     Indication: Product used for unknown indication
     Dosage: APPROXIMATELY 0.5G/DAY EVERY DAY
     Route: 055
     Dates: start: 2023

REACTIONS (2)
  - Drug abuse [Unknown]
  - Drug diversion [Unknown]

NARRATIVE: CASE EVENT DATE: 20230101
